FAERS Safety Report 22367299 (Version 1)
Quarter: 2023Q2

REPORT INFORMATION
  Report Type: Report from Study
  Country: HN (occurrence: HN)
  Receive Date: 20230525
  Receipt Date: 20230525
  Transmission Date: 20230722
  Serious: Yes (Other)
  Sender: FDA-Public Use
  Company Number: HN-002147023-NVSC2023HN116090

PATIENT
  Sex: Male

DRUGS (2)
  1. EXFORGE [Suspect]
     Active Substance: AMLODIPINE BESYLATE\VALSARTAN
     Indication: Hypertension
     Dosage: 0.5 DOSAGE FORM, QOD (HALF OF 10/320 MG, EVERY OTHER DAY)
     Route: 048
     Dates: start: 2015, end: 2020
  2. EXFORGE [Suspect]
     Active Substance: AMLODIPINE BESYLATE\VALSARTAN
     Dosage: 160/5 MG, QD
     Route: 048
     Dates: start: 2020, end: 2022

REACTIONS (4)
  - Aortitis [Recovering/Resolving]
  - Hypoaesthesia [Not Recovered/Not Resolved]
  - Wrong technique in product usage process [Recovering/Resolving]
  - Inappropriate schedule of product administration [Recovering/Resolving]

NARRATIVE: CASE EVENT DATE: 20200101
